FAERS Safety Report 18603383 (Version 5)
Quarter: 2021Q1

REPORT INFORMATION
  Report Type: Spontaneous
  Country: CA (occurrence: CA)
  Receive Date: 20201210
  Receipt Date: 20210317
  Transmission Date: 20210419
  Serious: Yes (Hospitalization)
  Sender: FDA-Public Use
  Company Number: CA-CELLTRION INC.-2019CA028144

PATIENT

DRUGS (10)
  1. INFLECTRA [Suspect]
     Active Substance: INFLIXIMAB-DYYB
     Dosage: 5 MG/KG BASED ON WEIGHT OF THE DAY, AT 0, 2, 6 WEEKS, THEN EVERY 8 WEEKS
     Route: 042
     Dates: start: 20201116, end: 20201116
  2. INFLECTRA [Suspect]
     Active Substance: INFLIXIMAB-DYYB
     Dosage: 5 MG/KG BASED ON WEIGHT OF THE DAY, AT 0, 2, 6 WEEKS, THEN EVERY 8 WEEKS
     Route: 042
     Dates: start: 20210308
  3. COVERSYL [Concomitant]
     Active Substance: PERINDOPRIL
     Dosage: 1 DF
     Route: 065
  4. RIFAMPIN. [Concomitant]
     Active Substance: RIFAMPIN
     Dosage: 1 DF (UNKNOWN FOR 4 MONTHS)
     Route: 065
     Dates: start: 201910
  5. INFLECTRA [Suspect]
     Active Substance: INFLIXIMAB-DYYB
     Dosage: 5 MG/KG BASED ON WEIGHT OF THE DAY, AT 0, 2, 6 WEEKS, THEN EVERY 8 WEEKS
     Route: 042
     Dates: start: 20191224
  6. INFLECTRA [Suspect]
     Active Substance: INFLIXIMAB-DYYB
     Indication: CROHN^S DISEASE
     Dosage: 5 MG/KG BASED ON WEIGHT OF THE DAY, AT 0, 2, 6 WEEKS, THEN EVERY 8 WEEKS (ROUNDED TO NEAREST 100 MG)
     Route: 042
     Dates: start: 20191209
  7. INFLECTRA [Suspect]
     Active Substance: INFLIXIMAB-DYYB
     Dosage: 5 MG/KG BASED ON WEIGHT OF THE DAY, AT 0, 2, 6 WEEKS, THEN EVERY 8 WEEKS
     Route: 042
     Dates: start: 20200508
  8. INFLECTRA [Suspect]
     Active Substance: INFLIXIMAB-DYYB
     Dosage: 5 MG/KG BASED ON WEIGHT OF THE DAY, AT 0, 2, 6 WEEKS, THEN EVERY 8 WEEKS
     Route: 042
     Dates: start: 20200717
  9. PREVACID [Concomitant]
     Active Substance: LANSOPRAZOLE
     Dosage: 1 DF
     Route: 065
  10. SYNTHROID [Concomitant]
     Active Substance: LEVOTHYROXINE SODIUM
     Dosage: 1 DF
     Route: 065

REACTIONS (9)
  - Pyrexia [Unknown]
  - Infusion site pain [Unknown]
  - Infusion site extravasation [Unknown]
  - Inappropriate schedule of product administration [Unknown]
  - Pulmonary embolism [Recovering/Resolving]
  - Salmonella bacteraemia [Recovering/Resolving]
  - Anal fissure [Unknown]
  - Infusion site swelling [Unknown]
  - Gastrointestinal viral infection [Unknown]

NARRATIVE: CASE EVENT DATE: 20200717
